FAERS Safety Report 18677619 (Version 20)
Quarter: 2024Q3

REPORT INFORMATION
  Report Type: Spontaneous
  Country: CA (occurrence: CA)
  Receive Date: 20201229
  Receipt Date: 20240822
  Transmission Date: 20241017
  Serious: Yes (Other)
  Sender: PFIZER
  Company Number: CA-PFIZER INC-2020389269

PATIENT
  Age: 32 Year
  Sex: Female
  Weight: 75.3 kg

DRUGS (9)
  1. IBRANCE [Suspect]
     Active Substance: PALBOCICLIB
     Indication: Breast cancer metastatic
     Dosage: 125 MG, CYCLIC, DAILY X 21 DAYS, OFF 7 DAYS
     Route: 048
     Dates: start: 20201116
  2. IBRANCE [Suspect]
     Active Substance: PALBOCICLIB
     Dosage: 125 MG, CYCLIC,DAILY X 21 DAYS, OFF 7 DAYS
     Route: 048
     Dates: start: 20210726
  3. IBRANCE [Suspect]
     Active Substance: PALBOCICLIB
     Dosage: 125 MG, CYCLIC,DAILY X 21 DAYS, OFF 7 DAYS
     Route: 048
     Dates: start: 20220110
  4. IBRANCE [Suspect]
     Active Substance: PALBOCICLIB
     Dosage: 125 MG, CYCLIC,125 MG CAPSULE ONE TIME EACH DAY FOR 21 DAYS THEN 7 DAYS OFF
     Route: 048
  5. IBRANCE [Suspect]
     Active Substance: PALBOCICLIB
     Dosage: 125 MG CAPSULE ONE TIME EACH DAY FOR 21 DAYS THEN 7 DAYS OFF
     Route: 048
     Dates: start: 20230922
  6. IBRANCE [Suspect]
     Active Substance: PALBOCICLIB
     Dosage: 125 MG CAPSULE ONE TIME EACH DAY FOR 21 DAYS THEN 7 DAYS OFF
     Route: 048
     Dates: start: 20240819
  7. ADRIAMYCIN [Concomitant]
     Active Substance: DOXORUBICIN HYDROCHLORIDE
     Dosage: UNK
  8. LETROZOLE [Concomitant]
     Active Substance: LETROZOLE
     Dosage: 2.5 MG, DAILY
     Route: 048
  9. ZOLADEX [Concomitant]
     Active Substance: GOSERELIN ACETATE
     Dosage: UNK

REACTIONS (8)
  - Spinal fracture [Unknown]
  - Oophorectomy [Unknown]
  - Anxiety [Unknown]
  - COVID-19 [Recovering/Resolving]
  - Weight increased [Unknown]
  - Body surface area increased [Unknown]
  - Psoriasis [Unknown]
  - Eczema [Unknown]

NARRATIVE: CASE EVENT DATE: 20200101
